FAERS Safety Report 4985450-7 (Version None)
Quarter: 2006Q2

REPORT INFORMATION
  Report Type: 
  Country: None (occurrence: None)
  Receive Date: 20060428
  Receipt Date: 20050110
  Transmission Date: 20061013
  Serious: No
  Sender: FDA-Public Use
  Company Number: US-GLAXOSMITHKLINE-A0540067A

PATIENT
  Age: 70 Year
  Sex: Male

DRUGS (2)
  1. FLOVENT [Suspect]
     Indication: ASTHMA
     Dosage: 3PUFF TWICE PER DAY
     Route: 055
     Dates: start: 20020101
  2. NASONEX [Concomitant]

REACTIONS (3)
  - MOUTH INJURY [None]
  - TENSION [None]
  - TOOTH FRACTURE [None]
